FAERS Safety Report 5031334-8 (Version None)
Quarter: 2006Q2

REPORT INFORMATION
  Report Type: 
  Country: None (occurrence: None)
  Receive Date: 20060621
  Receipt Date: 20060525
  Transmission Date: 20061013
  Serious: Yes (Death)
  Sender: FDA-Public Use
  Company Number: CN-SANOFI-SYNTHELABO-A01200603943

PATIENT
  Sex: Female

DRUGS (2)
  1. CAPECITABINE [Suspect]
     Dosage: 1500 MG BID X 14 DAYS, Q3W 5 CYCLES TOTAL
     Route: 048
     Dates: start: 20050117, end: 20050523
  2. ELOXATIN [Suspect]
     Route: 042
     Dates: start: 20050523, end: 20050523

REACTIONS (8)
  - ABDOMINAL PAIN UPPER [None]
  - COMA [None]
  - CONFUSIONAL STATE [None]
  - HEADACHE [None]
  - MULTI-ORGAN FAILURE [None]
  - PURPURA [None]
  - THROMBOCYTOPENIA [None]
  - VOMITING [None]
